FAERS Safety Report 8634325 (Version 2)
Quarter: 2012Q4

REPORT INFORMATION
  Report Type: 
  Country: JP (occurrence: JP)
  Receive Date: 20120626
  Receipt Date: 20120829
  Transmission Date: 20130627
  Serious: Yes (Hospitalization)
  Sender: FDA-Public Use
  Company Number: JP-JNJFOC-20120611602

PATIENT
  Age: 8 None
  Sex: Male

DRUGS (2)
  1. REMINYL ER [Suspect]
     Indication: DEMENTIA ALZHEIMER^S TYPE
     Dosage: oro dispersible tablet
     Route: 048
     Dates: start: 20120604, end: 20120615
  2. TAKEPRON [Concomitant]
     Route: 065

REACTIONS (1)
  - Gastric ulcer haemorrhage [Recovered/Resolved]
